FAERS Safety Report 5429174-0 (Version None)
Quarter: 2007Q3

REPORT INFORMATION
  Report Type: 
  Country: None (occurrence: None)
  Receive Date: 20070824
  Receipt Date: 20070807
  Transmission Date: 20080115
  Serious: Yes (Death)
  Sender: FDA-Public Use
  Company Number: 6035076

PATIENT
  Age: 89 Year
  Sex: Male

DRUGS (3)
  1. NICARDIPINE (INTRAVENOUS INFUSION) (NICARDIPINE) [Suspect]
     Indication: DRUG USE FOR UNKNOWN INDICATION
     Dosage: 60 MG (60 MG, 1 IN 1 ONCE), INTRAVENOUS (NOT OTHERWISE SPECIFIED)
     Route: 042
  2. GLUCOSE (GLUCOSE) [Concomitant]
  3. ANTI-PARKINSON AGENTS [Concomitant]

REACTIONS (8)
  - BLOOD GLUCOSE DECREASED [None]
  - CARDIO-RESPIRATORY ARREST [None]
  - HYPOTENSION [None]
  - MALNUTRITION [None]
  - OVERDOSE [None]
  - OXYGEN SATURATION DECREASED [None]
  - SUDDEN DEATH [None]
  - WRONG DRUG ADMINISTERED [None]
